FAERS Safety Report 6136873-4 (Version None)
Quarter: 2009Q1

REPORT INFORMATION
  Report Type: 
  Country: None (occurrence: None)
  Receive Date: 20090330
  Receipt Date: 20090320
  Transmission Date: 20090719
  Serious: Yes (Hospitalization, Other)
  Sender: FDA-Public Use
  Company Number: PHHO2009US02157

PATIENT
  Sex: Male

DRUGS (14)
  1. RAD 666 RAD+TAB [Suspect]
     Indication: LIVER TRANSPLANT
     Dosage: 0.5 MG, BID
     Route: 048
     Dates: start: 19990105, end: 20090206
  2. RAD 666 RAD+TAB [Suspect]
     Dosage: 0.5 MG, BID
     Route: 048
     Dates: start: 20090206, end: 20090302
  3. METOPROLOL [Suspect]
  4. BONIVA [Concomitant]
     Indication: OSTEOPOROSIS
     Dosage: 150 MG, QMO
     Route: 048
     Dates: start: 20080101
  5. COMPAZINE [Concomitant]
     Indication: NAUSEA
     Dosage: UNK
     Dates: start: 20081201
  6. GENGRAF [Concomitant]
     Indication: IMMUNOSUPPRESSION
     Dosage: UNK
     Dates: start: 19990105
  7. LASIX [Concomitant]
     Indication: OEDEMA
     Dosage: UNK
     Dates: start: 20081201
  8. LANTUS [Concomitant]
     Indication: DIABETES MELLITUS
     Dosage: UNK
     Dates: start: 20080720
  9. MULTI-VITAMIN [Concomitant]
     Indication: VITAMIN SUPPLEMENTATION
     Dosage: UNK
  10. NORVASC [Concomitant]
     Indication: HYPERTENSION
     Dosage: UNK
  11. ASACOL [Concomitant]
     Indication: COLITIS ULCERATIVE
     Dosage: UNK
  12. ALDACTONE [Concomitant]
     Indication: OEDEMA
     Dosage: UNK
  13. SYNTHROID [Concomitant]
     Indication: HYPOTHYROIDISM
     Dosage: UNK
  14. ACTIGALL [Concomitant]
     Indication: PROPHYLAXIS
     Dosage: UNK

REACTIONS (19)
  - ABSCESS DRAINAGE [None]
  - ASTHENIA [None]
  - ATRIAL FLUTTER [None]
  - CHOLANGIOGRAM [None]
  - CONFUSIONAL STATE [None]
  - DIARRHOEA [None]
  - ENTEROCOCCAL INFECTION [None]
  - FATIGUE [None]
  - GASTROINTESTINAL HAEMORRHAGE [None]
  - HEART RATE INCREASED [None]
  - HEPATIC VEIN STENOSIS [None]
  - HYPONATRAEMIA [None]
  - HYPOTENSION [None]
  - HYPOVOLAEMIA [None]
  - ILEUS [None]
  - LIVER ABSCESS [None]
  - PLATELET COUNT DECREASED [None]
  - PYREXIA [None]
  - SEPTIC SHOCK [None]
